FAERS Safety Report 21082486 (Version 1)
Quarter: 2022Q3

REPORT INFORMATION
  Report Type: Spontaneous
  Country: US (occurrence: None)
  Receive Date: 20220714
  Receipt Date: 20220714
  Transmission Date: 20221026
  Serious: Yes (Life-Threatening)
  Sender: FDA-Public Use
  Company Number: None

PATIENT
  Age: 61 Year
  Sex: Male

DRUGS (1)
  1. CEFAZOLIN SODIUM [Suspect]
     Active Substance: CEFAZOLIN SODIUM
     Dosage: OTHER STRENGTH :  1 GM/VIL;?FREQUENCY : ONCE;?
     Route: 058
     Dates: start: 20220623, end: 20220623

REACTIONS (2)
  - Anaphylactic reaction [None]
  - Bronchospasm [None]

NARRATIVE: CASE EVENT DATE: 20220623
